FAERS Safety Report 6167004-2 (Version None)
Quarter: 2009Q2

REPORT INFORMATION
  Report Type: 
  Country: None (occurrence: None)
  Receive Date: 20090423
  Receipt Date: 20090423
  Transmission Date: 20091009
  Serious: Yes (Life-Threatening, Hospitalization)
  Sender: FDA-Public Use
  Company Number: None

PATIENT
  Age: 83 Year
  Sex: Female

DRUGS (4)
  1. SELEGILINE HCL [Suspect]
     Indication: PARKINSON'S DISEASE
     Dosage: 5 MG BID PO
     Route: 048
  2. BUSPIRONE HCL [Suspect]
     Indication: ANXIETY
     Dosage: 15 MG TID PO
     Route: 048
  3. PAROXETINE HCL [Concomitant]
  4. BUPROPION HCL [Concomitant]

REACTIONS (2)
  - CEREBROVASCULAR ACCIDENT [None]
  - HYPERTENSION [None]
